FAERS Safety Report 25687393 (Version 1)
Quarter: 2025Q3

REPORT INFORMATION
  Report Type: Report from Study
  Country: US (occurrence: US)
  Receive Date: 20250816
  Receipt Date: 20250816
  Transmission Date: 20251020
  Serious: Yes (Other)
  Sender: SERVIER
  Company Number: US-SERVIER-S25009159

PATIENT

DRUGS (1)
  1. VORASIDENIB [Suspect]
     Active Substance: VORASIDENIB
     Indication: Brain neoplasm malignant
     Dosage: 40 MG, QD
     Route: 048
     Dates: start: 20250303

REACTIONS (7)
  - Malignant neoplasm progression [Unknown]
  - Hypotension [Unknown]
  - Dry mouth [Unknown]
  - Gastrooesophageal reflux disease [Not Recovered/Not Resolved]
  - Cough [Unknown]
  - Depression [Unknown]
  - Anxiety [Unknown]

NARRATIVE: CASE EVENT DATE: 20250501
